FAERS Safety Report 5851900-7 (Version None)
Quarter: 2008Q3

REPORT INFORMATION
  Report Type: 
  Country: None (occurrence: None)
  Receive Date: 20080820
  Receipt Date: 20080813
  Transmission Date: 20090109
  Serious: Yes (Hospitalization)
  Sender: FDA-Public Use
  Company Number: GB-PFIZER INC-2008067995

PATIENT
  Age: 21 Year
  Sex: Male

DRUGS (5)
  1. ATORVASTATIN [Suspect]
     Indication: HYPERCHOLESTEROLAEMIA
     Route: 048
  2. ATORVASTATIN [Suspect]
     Indication: HYPERTRIGLYCERIDAEMIA
  3. CLOZAPINE [Concomitant]
     Indication: SCHIZOPHRENIA
     Route: 048
  4. LANSOPRAZOLE [Concomitant]
     Indication: OESOPHAGITIS
     Route: 048
  5. PROPRANOLOL [Concomitant]
     Indication: TACHYCARDIA
     Route: 048

REACTIONS (7)
  - BLOOD CREATINE PHOSPHOKINASE INCREASED [None]
  - BLOOD CREATININE INCREASED [None]
  - DIARRHOEA [None]
  - LIVER FUNCTION TEST ABNORMAL [None]
  - RHABDOMYOLYSIS [None]
  - VOMITING [None]
  - WHITE BLOOD CELL COUNT INCREASED [None]
